FAERS Safety Report 21598866 (Version 2)
Quarter: 2022Q4

REPORT INFORMATION
  Report Type: Spontaneous
  Country: US (occurrence: US)
  Receive Date: 20221115
  Receipt Date: 20221207
  Transmission Date: 20230112
  Serious: No
  Sender: FDA-Public Use
  Company Number: US-SA-SAC20221111000136

PATIENT
  Sex: Female

DRUGS (5)
  1. DUPIXENT [Suspect]
     Active Substance: DUPILUMAB
     Indication: Dermatitis atopic
     Dosage: 200 MG, QOW
     Route: 058
     Dates: start: 20221018
  2. CLOBETASOL [Concomitant]
     Active Substance: CLOBETASOL
  3. ELIDEL [Concomitant]
     Active Substance: PIMECROLIMUS
  4. EUCRISA [Concomitant]
     Active Substance: CRISABOROLE
  5. XYZAL [Concomitant]
     Active Substance: LEVOCETIRIZINE DIHYDROCHLORIDE

REACTIONS (2)
  - Injection site rash [Recovered/Resolved]
  - Injection site reaction [Unknown]
